FAERS Safety Report 13433285 (Version 2)
Quarter: 2017Q2

REPORT INFORMATION
  Report Type: Spontaneous
  Country: CH (occurrence: CH)
  Receive Date: 20170412
  Receipt Date: 20170413
  Transmission Date: 20170830
  Serious: Yes (Hospitalization)
  Sender: FDA-Public Use
  Company Number: CH-JNJFOC-20170405590

PATIENT
  Age: 81 Year
  Sex: Male

DRUGS (8)
  1. HALDOL [Suspect]
     Active Substance: HALOPERIDOL
     Indication: NEUROPSYCHIATRIC SYMPTOMS
     Route: 048
     Dates: start: 20170124, end: 20170222
  2. TAMSULOSIN [Suspect]
     Active Substance: TAMSULOSIN
     Indication: BENIGN PROSTATIC HYPERPLASIA
     Route: 048
     Dates: start: 20170317, end: 20170322
  3. CLOMETHIAZOLE [Suspect]
     Active Substance: CLOMETHIAZOLE
     Indication: NEUROPSYCHIATRIC SYMPTOMS
     Route: 048
     Dates: start: 20170317, end: 20170324
  4. CLOMETHIAZOLE [Suspect]
     Active Substance: CLOMETHIAZOLE
     Indication: NEUROPSYCHIATRIC SYMPTOMS
     Route: 048
     Dates: start: 20170124, end: 20170222
  5. ESOMEPRAZOLE [Suspect]
     Active Substance: ESOMEPRAZOLE
     Indication: PRODUCT USED FOR UNKNOWN INDICATION
     Route: 048
  6. SALVIA OFFICINALIS LEAF [Suspect]
     Active Substance: SAGE
     Indication: SALIVARY HYPERSECRETION
     Route: 048
     Dates: start: 20170209, end: 20170222
  7. IMOVANE [Suspect]
     Active Substance: ZOPICLONE
     Indication: NEUROPSYCHIATRIC SYMPTOMS
     Route: 048
     Dates: start: 20170127, end: 20170222
  8. TEBOKAN [Suspect]
     Active Substance: GINKGO
     Indication: MIXED DEMENTIA
     Route: 048
     Dates: end: 20170222

REACTIONS (3)
  - Jaundice cholestatic [Recovering/Resolving]
  - Lipase increased [Recovering/Resolving]
  - Cholestatic liver injury [Recovering/Resolving]

NARRATIVE: CASE EVENT DATE: 20170222
